FAERS Safety Report 8917724 (Version 2)
Quarter: 2012Q4

REPORT INFORMATION
  Report Type: Report from Study
  Country: US (occurrence: US)
  Receive Date: 20121119
  Receipt Date: 20121226
  Transmission Date: 20130627
  Serious: Yes (Other)
  Sender: FDA-Public Use
  Company Number: US-US-EMD SERONO, INC.-7174636

PATIENT
  Sex: Female

DRUGS (3)
  1. REBIF [Suspect]
     Indication: MULTIPLE SCLEROSIS
     Route: 058
     Dates: start: 20121017
  2. METFORMIN [Concomitant]
     Indication: BLOOD GLUCOSE INCREASED
     Dates: start: 2007
  3. METFORMIN [Concomitant]

REACTIONS (1)
  - Blood glucose increased [Recovered/Resolved]
